FAERS Safety Report 5050802-6 (Version None)
Quarter: 2006Q3

REPORT INFORMATION
  Report Type: 
  Country: None (occurrence: None)
  Receive Date: 20060710
  Receipt Date: 20060703
  Transmission Date: 20061208
  Serious: Yes (Other)
  Sender: FDA-Public Use
  Company Number: GXKR2006DE03760

PATIENT
  Age: 3 Year
  Sex: Female
  Weight: 12 kg

DRUGS (2)
  1. CEFUROXIME [Suspect]
     Indication: EAR INFECTION
     Dosage: 5 ML, BID, ORAL
     Route: 048
     Dates: start: 20060404, end: 20060405
  2. OTOBACID (CALCIUM PANTOTHENATE, CHLORAMPHENICOL, DEXAMETHASONE, PROPYP [Concomitant]

REACTIONS (6)
  - CRYING [None]
  - DISORIENTATION [None]
  - HALLUCINATION [None]
  - MUSCULOSKELETAL STIFFNESS [None]
  - NIGHTMARE [None]
  - RESTLESSNESS [None]
